FAERS Safety Report 23899561 (Version 1)
Quarter: 2024Q2

REPORT INFORMATION
  Report Type: Spontaneous
  Country: US (occurrence: None)
  Receive Date: 20240526
  Receipt Date: 20240526
  Transmission Date: 20240716
  Serious: No
  Sender: FDA-Public Use
  Company Number: US-ROCHE-3493258

PATIENT
  Sex: Female
  Weight: 53.572 kg

DRUGS (9)
  1. ACTEMRA [Suspect]
     Active Substance: TOCILIZUMAB
     Indication: Rheumatoid arthritis
     Dosage: INJECTION INTO THE THIGH
     Route: 058
     Dates: start: 20231115
  2. ACTEMRA [Suspect]
     Active Substance: TOCILIZUMAB
  3. LOSARTAN AND HYDROCHLOROTHIAZIDE [Concomitant]
     Active Substance: HYDROCHLOROTHIAZIDE\LOSARTAN POTASSIUM
     Indication: Blood pressure measurement
     Route: 048
     Dates: start: 2014
  4. ROSUVASTATIN [Concomitant]
     Active Substance: ROSUVASTATIN
     Indication: Blood cholesterol
     Route: 048
     Dates: start: 202308
  5. ASPIRIN [Concomitant]
     Active Substance: ASPIRIN
     Route: 048
     Dates: start: 202308
  6. METHOTREXATE [Concomitant]
     Active Substance: METHOTREXATE
     Indication: Rheumatoid arthritis
     Route: 048
     Dates: start: 2023
  7. ATENOLOL [Concomitant]
     Active Substance: ATENOLOL
     Indication: Arrhythmia
     Route: 048
     Dates: start: 2014
  8. ATENOLOL [Concomitant]
     Active Substance: ATENOLOL
     Indication: Ventricular extrasystoles
  9. FOLIC ACID [Concomitant]
     Active Substance: FOLIC ACID
     Route: 048
     Dates: start: 2023

REACTIONS (7)
  - Wrong technique in device usage process [Unknown]
  - Product quality issue [Unknown]
  - Pain [Recovered/Resolved]
  - Underdose [Unknown]
  - Device use error [Unknown]
  - Device malfunction [Unknown]
  - Drug delivery system malfunction [Unknown]

NARRATIVE: CASE EVENT DATE: 20231129
